FAERS Safety Report 8913528 (Version 2)
Quarter: 2013Q2

REPORT INFORMATION
  Report Type: Spontaneous
  Country: FR (occurrence: FR)
  Receive Date: 20121113
  Receipt Date: 20130410
  Transmission Date: 20140414
  Serious: Yes (Hospitalization)
  Sender: FDA-Public Use
  Company Number: 2012SP003483

PATIENT
  Age: 57 Year
  Sex: Female

DRUGS (36)
  1. VANCOMYCIN [Suspect]
     Indication: PSEUDOMONAS INFECTION
     Route: 042
     Dates: start: 20120803, end: 20120805
  2. OXYNORM [Suspect]
     Indication: PAIN
     Route: 048
     Dates: start: 20120731, end: 20120805
  3. ZOVIRAX /00587301/ [Suspect]
     Indication: PROPHYLAXIS
     Dates: start: 20120731, end: 20120807
  4. FORTUM [Suspect]
     Indication: PSEUDOMONAS INFECTION
     Route: 042
     Dates: start: 20120802, end: 20120809
  5. FORTUM [Suspect]
     Indication: PSEUDOMONAS INFECTION
     Route: 042
     Dates: start: 20120725, end: 20120728
  6. PLITICAN [Suspect]
     Indication: NAUSEA
     Route: 042
     Dates: start: 20120727, end: 20120808
  7. TRIFLUCAN [Suspect]
     Indication: PROPHYLAXIS
     Dates: start: 20120725, end: 20120806
  8. ZELITREX [Concomitant]
     Dates: start: 20120722, end: 20120730
  9. ZOPHREN /00955301/ [Concomitant]
     Dates: start: 20120722, end: 20120725
  10. DEXAMETHASONE [Concomitant]
     Dates: start: 20120323
  11. DEXAMETHASONE [Concomitant]
     Dates: start: 20120416
  12. DEXAMETHASONE [Concomitant]
     Dates: start: 20120604
  13. DEXAMETHASONE [Concomitant]
     Dates: start: 20120618
  14. NEBIVOLOL [Concomitant]
  15. VERSATIS [Concomitant]
  16. LIPANTHYL [Concomitant]
  17. OLMESARTAN MEDOXOMIL [Concomitant]
  18. HYDROCHLOROTHIAZIDE [Concomitant]
  19. MELPHALAN [Concomitant]
     Dates: start: 20120723, end: 20120724
  20. NEULASTA [Concomitant]
     Dates: start: 20120727
  21. VELCADE [Concomitant]
  22. THALIDOMIDE [Concomitant]
  23. MYOLASTAN [Concomitant]
     Dates: start: 20120725, end: 20120728
  24. MYOLASTAN [Concomitant]
  25. TRANSIPEG /00754501/ [Concomitant]
     Dates: start: 20120726, end: 20120730
  26. CERNEVIT /01695601/ [Concomitant]
     Dates: start: 20120726, end: 20120730
  27. OLIGOELEMENTS [Concomitant]
     Dates: start: 20120726, end: 20120730
  28. OLICLINOMEL /01716901/ [Concomitant]
     Dates: start: 20120726, end: 20120729
  29. PERFALGAN [Concomitant]
     Dates: start: 20120803, end: 20120807
  30. AMIKLIN /00391002/ [Concomitant]
     Dates: start: 20120731, end: 20120803
  31. FLAGYL /00012501/ [Concomitant]
     Dates: start: 20120802, end: 20120807
  32. ACUPAN [Concomitant]
     Dates: start: 20120802, end: 20120807
  33. SPASFON /00934601/ [Concomitant]
     Dates: start: 20120803, end: 20120810
  34. SMECTA /00837601/ [Concomitant]
     Dates: start: 20120804, end: 20120810
  35. ACETORPHAN [Concomitant]
     Dates: start: 20120804, end: 20120810
  36. MOPRAL /00661203/ [Concomitant]

REACTIONS (4)
  - Toxic skin eruption [Unknown]
  - Rash maculo-papular [Recovered/Resolved]
  - Jaundice cholestatic [Recovered/Resolved]
  - Pruritus [Unknown]
